FAERS Safety Report 5246629-2 (Version None)
Quarter: 2007Q1

REPORT INFORMATION
  Report Type: 
  Country: None (occurrence: None)
  Receive Date: 20070226
  Receipt Date: 20070215
  Transmission Date: 20070707
  Serious: Yes (Death, Hospitalization)
  Sender: FDA-Public Use
  Company Number: CH-ROCHE-482973

PATIENT
  Age: 49 Year
  Sex: Male

DRUGS (8)
  1. CYMEVENE [Suspect]
     Indication: DRUG USE FOR UNKNOWN INDICATION
     Route: 042
     Dates: start: 20050701, end: 20050721
  2. BACTRIM [Concomitant]
  3. MABTHERA [Concomitant]
  4. CIPROFLOXACIN [Concomitant]
     Dosage: DRUG NAME REPORTED AS ^CIPROFLOXACIN HEXAL^
  5. DIFLUCAN [Concomitant]
  6. PRECORTALON [Concomitant]
     Dosage: DRUG NAME REPORTED AS ^PRECORTALON AQUOSUM^
  7. SANDIMMUNE [Concomitant]
  8. AMBISOME [Concomitant]

REACTIONS (1)
  - RENAL FAILURE [None]
